FAERS Safety Report 8189683-0 (Version None)
Quarter: 2012Q1

REPORT INFORMATION
  Report Type: 
  Country: None (occurrence: None)
  Receive Date: 20120307
  Receipt Date: 20120228
  Transmission Date: 20120608
  Serious: Yes (Other)
  Sender: FDA-Public Use
  Company Number: US-US-EMD SERONO, INC.-7115900

PATIENT
  Sex: Female

DRUGS (3)
  1. REBIF [Suspect]
     Indication: MULTIPLE SCLEROSIS
  2. REBIF [Suspect]
     Route: 058
     Dates: start: 20120222
  3. PERCOCET [Concomitant]
     Indication: PAIN

REACTIONS (3)
  - ABORTION SPONTANEOUS [None]
  - MATERNAL EXPOSURE TIMING UNSPECIFIED [None]
  - INFLUENZA LIKE ILLNESS [None]
